FAERS Safety Report 12195158 (Version 2)
Quarter: 2016Q1

REPORT INFORMATION
  Report Type: Spontaneous
  Country: SE (occurrence: SE)
  Receive Date: 20160321
  Receipt Date: 20160328
  Transmission Date: 20160526
  Serious: Yes (Congenital Anomaly)
  Sender: FDA-Public Use
  Company Number: SE-JNJFOC-20160312630

PATIENT
  Sex: Female

DRUGS (4)
  1. PREDNISOLONE. [Concomitant]
     Active Substance: PREDNISOLONE
     Route: 064
  2. TROMBYL [Concomitant]
     Active Substance: ASPIRIN
     Route: 064
  3. REMICADE [Suspect]
     Active Substance: INFLIXIMAB
     Indication: TAKAYASU^S ARTERITIS
     Dosage: INFUSION LOADING DOSE
     Route: 064
     Dates: start: 20141112
  4. FOLIC ACID. [Concomitant]
     Active Substance: FOLIC ACID
     Route: 064

REACTIONS (3)
  - Congenital nephrotic syndrome [Unknown]
  - Gene mutation [Unknown]
  - Foetal exposure during pregnancy [Recovered/Resolved]

NARRATIVE: CASE EVENT DATE: 201508
